FAERS Safety Report 8828589 (Version 2)
Quarter: 2015Q2

REPORT INFORMATION
  Report Type: Report from Study
  Country: US (occurrence: US)
  Receive Date: 20121005
  Receipt Date: 20150629
  Transmission Date: 20150821
  Serious: Yes (Death)
  Sender: FDA-Public Use
  Company Number: US-ROCHE-1130258

PATIENT
  Sex: Male

DRUGS (11)
  1. FOLIC ACID. [Concomitant]
     Active Substance: FOLIC ACID
  2. RITUXAN [Suspect]
     Active Substance: RITUXIMAB
     Indication: AUTOIMMUNE HAEMOLYTIC ANAEMIA
     Route: 065
     Dates: start: 20041230
  3. PREDNISONE. [Concomitant]
     Active Substance: PREDNISONE
     Route: 065
  4. VITAMIN B COMPLEX [Concomitant]
     Active Substance: CYANOCOBALAMIN\DEXPANTHENOL\NIACINAMIDE\PYRIDOXINE HYDROCHLORIDE\RIBOFLAVIN 5^-PHOSPHATE SODIUM\THIAMINE HYDROCHLORIDE\VITAMIN B COMPLEX
  5. EXELON [Concomitant]
     Active Substance: RIVASTIGMINE TARTRATE
  6. BENADRYL [Concomitant]
     Active Substance: DIPHENHYDRAMINE HYDROCHLORIDE
     Route: 065
  7. VITAMIN E [Concomitant]
     Active Substance: .ALPHA.-TOCOPHEROL
  8. RITUXAN [Suspect]
     Active Substance: RITUXIMAB
     Indication: OFF LABEL USE
  9. TYLENOL [Concomitant]
     Active Substance: ACETAMINOPHEN
     Route: 065
  10. FLOMAX (UNITED STATES) [Concomitant]
  11. IBUPROFEN. [Concomitant]
     Active Substance: IBUPROFEN

REACTIONS (12)
  - Pain in extremity [Unknown]
  - Confusional state [Unknown]
  - Dyspnoea [Unknown]
  - Headache [Unknown]
  - Death [Fatal]
  - Chest pain [Unknown]
  - Vision blurred [Unknown]
  - Off label use [Unknown]
  - Chest discomfort [Unknown]
  - Back pain [Unknown]
  - Neck pain [Unknown]
  - Weight increased [Unknown]
